FAERS Safety Report 7110281-1 (Version None)
Quarter: 2010Q4

REPORT INFORMATION
  Report Type: 
  Country: None (occurrence: None)
  Receive Date: 20101118
  Receipt Date: 20100811
  Transmission Date: 20110411
  Serious: No
  Sender: FDA-Public Use
  Company Number: US-BAYER-201030598NA

PATIENT
  Age: 37 Year
  Sex: Female
  Weight: 73 kg

DRUGS (2)
  1. ULTRAVIST 300 [Suspect]
     Indication: PANCREATIC MASS
     Dosage: TOTAL DAILY DOSE: 110 ML  UNIT DOSE: 300 ML
     Route: 042
     Dates: start: 20100811, end: 20100811
  2. VOLUMEN [Concomitant]
     Indication: COMPUTERISED TOMOGRAM ABDOMEN
     Route: 048
     Dates: start: 20100811, end: 20100811

REACTIONS (1)
  - PARAESTHESIA ORAL [None]
